FAERS Safety Report 15015007 (Version 2)
Quarter: 2018Q3

REPORT INFORMATION
  Report Type: Spontaneous
  Country: US (occurrence: US)
  Receive Date: 20180615
  Receipt Date: 20180727
  Transmission Date: 20181010
  Serious: No
  Sender: FDA-Public Use
  Company Number: US-ASTRAZENECA-2018SE67369

PATIENT
  Sex: Male

DRUGS (1)
  1. SYMBICORT [Suspect]
     Active Substance: BUDESONIDE\FORMOTEROL FUMARATE DIHYDRATE
     Route: 055
     Dates: start: 2008

REACTIONS (4)
  - Off label use [Not Recovered/Not Resolved]
  - Drug dose omission [Unknown]
  - Asthma [Not Recovered/Not Resolved]
  - Product packaging quantity issue [Not Recovered/Not Resolved]
